FAERS Safety Report 20385302 (Version 1)
Quarter: 2022Q1

REPORT INFORMATION
  Report Type: Report from Study
  Country: US (occurrence: US)
  Receive Date: 20220127
  Receipt Date: 20220127
  Transmission Date: 20220423
  Serious: No
  Sender: FDA-Public Use
  Company Number: US-NOVARTISTESTPH-NVSC2022US014133

PATIENT
  Sex: Female

DRUGS (3)
  1. PREDNISONE [Suspect]
     Active Substance: PREDNISONE
     Indication: Rheumatoid arthritis
     Route: 048
  2. IBUPROFEN [Suspect]
     Active Substance: IBUPROFEN
     Indication: Rheumatoid arthritis
     Dosage: UNK
     Route: 065
  3. ORENCIA [Concomitant]
     Active Substance: ABATACEPT
     Indication: Product used for unknown indication
     Route: 065

REACTIONS (7)
  - Arthralgia [Unknown]
  - Joint swelling [Unknown]
  - Gait disturbance [Unknown]
  - Rheumatoid factor quantitative increased [Unknown]
  - Impaired work ability [Unknown]
  - Hypersensitivity [Unknown]
  - Drug ineffective [Unknown]
